FAERS Safety Report 20843647 (Version 1)
Quarter: 2022Q2

REPORT INFORMATION
  Report Type: Spontaneous
  Country: US (occurrence: None)
  Receive Date: 20220517
  Receipt Date: 20220517
  Transmission Date: 20220720
  Serious: Yes (unspecified)
  Sender: FDA-Public Use
  Company Number: None

PATIENT
  Age: 63 Year
  Sex: Female

DRUGS (1)
  1. STELARA [Suspect]
     Active Substance: USTEKINUMAB
     Indication: Crohn^s disease
     Dosage: FREQUENCY : MONTHLY;?
     Route: 058
     Dates: start: 202107

REACTIONS (5)
  - Cholecystectomy [None]
  - Procedural pain [None]
  - Condition aggravated [None]
  - Abdominal adhesions [None]
  - Therapy interrupted [None]

NARRATIVE: CASE EVENT DATE: 20220301
